FAERS Safety Report 9335895 (Version 1)
Quarter: 2013Q2

REPORT INFORMATION
  Report Type: Spontaneous
  Country: US (occurrence: US)
  Receive Date: 20130606
  Receipt Date: 20130606
  Transmission Date: 20140414
  Serious: No
  Sender: FDA-Public Use
  Company Number: US-AMGEN-USASP2013012215

PATIENT
  Age: 90 Year
  Sex: Female
  Weight: 97.8 kg

DRUGS (10)
  1. PROLIA [Suspect]
     Indication: OSTEOPOROSIS POSTMENOPAUSAL
     Dosage: 60 MG, Q6MO
     Dates: start: 20121124
  2. CENTRUM SILVER                     /02363801/ [Concomitant]
  3. CITRACAL PLUS BONE DENSITY BUILDER [Concomitant]
     Dosage: UNK UNK, BID
  4. CITRACAL PETITES [Concomitant]
  5. ASPIRIN [Concomitant]
     Dosage: 81 MG, UNK
  6. EVISTA [Concomitant]
  7. FISH OIL [Concomitant]
  8. HYZAAR [Concomitant]
  9. FLUTICASONE [Concomitant]
     Dosage: 50 MUG, QD
  10. CALTRATE                           /00944201/ [Concomitant]
     Dosage: UNK UNK, QD
     Route: 048

REACTIONS (2)
  - Back pain [Recovered/Resolved]
  - Myalgia [Recovered/Resolved]
